FAERS Safety Report 19051210 (Version 1)
Quarter: 2021Q1

REPORT INFORMATION
  Report Type: Other
  Country: AR (occurrence: AR)
  Receive Date: 20210323
  Receipt Date: 20210323
  Transmission Date: 20210420
  Serious: Yes (Hospitalization)
  Sender: FDA-Public Use
  Company Number: AR-B.BRAUN MEDICAL INC.-2108369

PATIENT
  Age: 73 Year
  Sex: Female

DRUGS (4)
  1. MAGNESIUM [Concomitant]
     Active Substance: MAGNESIUM
  2. ISOPROTERENOL. [Concomitant]
     Active Substance: ISOPROTERENOL
     Route: 042
  3. AMIODARONE HYDROCHLORIDE. [Concomitant]
     Active Substance: AMIODARONE HYDROCHLORIDE
     Route: 042
  4. LIDOCAINE HYDROCHLORIDE AND DEXTROSE [Suspect]
     Active Substance: DEXTROSE\LIDOCAINE HYDROCHLORIDE
     Indication: ARRHYTHMIA
     Route: 042

REACTIONS (1)
  - Drug ineffective [Recovered/Resolved]
